FAERS Safety Report 17478308 (Version 1)
Quarter: 2020Q1

REPORT INFORMATION
  Report Type: Report from Study
  Country: IL (occurrence: IL)
  Receive Date: 20200228
  Receipt Date: 20200228
  Transmission Date: 20200409
  Serious: Yes (Hospitalization, Other)
  Sender: FDA-Public Use
  Company Number: IL-JNJFOC-20160523112

PATIENT
  Age: 48 Year
  Sex: Female

DRUGS (4)
  1. SIMPONI [Suspect]
     Active Substance: GOLIMUMAB
     Indication: RHEUMATOID ARTHRITIS
  2. AUGMENTIN [Concomitant]
     Active Substance: AMOXICILLIN\CLAVULANATE POTASSIUM
     Route: 065
     Dates: start: 2019
  3. METHOTREXATE. [Concomitant]
     Active Substance: METHOTREXATE
     Route: 065
  4. SIMPONI [Suspect]
     Active Substance: GOLIMUMAB
     Indication: ANKYLOSING SPONDYLITIS
     Route: 058
     Dates: start: 20141022

REACTIONS (8)
  - Off label use [Unknown]
  - Inappropriate schedule of product administration [Unknown]
  - Bronchitis [Recovered/Resolved]
  - Pneumonia [Recovering/Resolving]
  - Infection [Recovered/Resolved]
  - Limb operation [Unknown]
  - Arthropathy [Recovered/Resolved]
  - Spinal nerve stimulator implantation [Unknown]

NARRATIVE: CASE EVENT DATE: 201706
